FAERS Safety Report 7792303 (Version 2)
Quarter: 2017Q1

REPORT INFORMATION
  Report Type: Report from Study
  Country: IT (occurrence: IT)
  Receive Date: 20110131
  Receipt Date: 20170131
  Transmission Date: 20170429
  Serious: No
  Sender: FDA-Public Use
  Company Number: PHHO2010IT00487

PATIENT
  Sex: Female

DRUGS (1)
  1. GILENYA [Suspect]
     Active Substance: FINGOLIMOD HYDROCHLORIDE
     Indication: MULTIPLE SCLEROSIS
     Dosage: FOETAL DRUG EXPOSURE VIA FATHER
     Route: 065

REACTIONS (2)
  - Exposure via father [Unknown]
  - Normal newborn [Unknown]
